FAERS Safety Report 22300306 (Version 2)
Quarter: 2023Q2

REPORT INFORMATION
  Report Type: Spontaneous
  Country: GB (occurrence: None)
  Receive Date: 20230509
  Receipt Date: 20230515
  Transmission Date: 20230721
  Serious: Yes (Other)
  Sender: FDA-Public Use
  Company Number: GB-Merck Healthcare KGaA-9399970

PATIENT
  Age: 51 Year
  Sex: Male

DRUGS (2)
  1. AVELUMAB [Suspect]
     Active Substance: AVELUMAB
     Indication: Product used for unknown indication
     Dates: start: 202203
  2. AXITINIB [Suspect]
     Active Substance: AXITINIB
     Indication: Product used for unknown indication
     Dates: start: 202203

REACTIONS (10)
  - Myocarditis [Unknown]
  - Tachycardia [Unknown]
  - Chest pain [Unknown]
  - Arthritis [Unknown]
  - Cortisol decreased [Unknown]
  - Vomiting [Unknown]
  - Neoplasm progression [Unknown]
  - Infusion related reaction [Unknown]
  - Diarrhoea [Unknown]
  - Pruritus [Unknown]

NARRATIVE: CASE EVENT DATE: 20220401
